FAERS Safety Report 26115540 (Version 1)
Quarter: 2025Q4

REPORT INFORMATION
  Report Type: Spontaneous
  Country: US (occurrence: US)
  Receive Date: 20251203
  Receipt Date: 20251203
  Transmission Date: 20260118
  Serious: Yes (Life-Threatening)
  Sender: BAUSCH AND LOMB
  Company Number: US-BAUSCH-BH-2025-021109

PATIENT
  Age: 32 Year
  Sex: Female

DRUGS (2)
  1. DESMOPRESSIN [Suspect]
     Active Substance: DESMOPRESSIN
     Indication: Diabetes insipidus
     Dosage: ONE SPRAY IN THE MORNING AND AFTERNOON AND TWO SPRAYS IN THE EVENING
     Route: 045
  2. DESMOPRESSIN [Suspect]
     Active Substance: DESMOPRESSIN
     Dosage: REINTRODUCED AT A LOWER DOSE
     Route: 045

REACTIONS (2)
  - Hyponatraemia [Unknown]
  - Incorrect dose administered [Unknown]
